FAERS Safety Report 19899635 (Version 1)
Quarter: 2021Q3

REPORT INFORMATION
  Report Type: Spontaneous
  Country: GB (occurrence: GB)
  Receive Date: 20210929
  Receipt Date: 20210929
  Transmission Date: 20211014
  Serious: Yes (Other)
  Sender: FDA-Public Use
  Company Number: GB-MYLANLABS-2021M1066560

PATIENT
  Age: 32 Year
  Sex: Female
  Weight: 96 kg

DRUGS (9)
  1. CLENIL MODULITE [Concomitant]
     Active Substance: BECLOMETHASONE DIPROPIONATE
     Dosage: 2 DOSAGE FORM, BID
     Route: 055
     Dates: start: 20191008
  2. DOXYCYCLINE. [Suspect]
     Active Substance: DOXYCYCLINE
     Indication: PRODUCT USED FOR UNKNOWN INDICATION
     Dosage: 100 MILLIGRAM, QD
     Dates: start: 20210824
  3. OCTENISAN                          /07129001/ [Concomitant]
     Active Substance: ALLANTOIN\OCTENIDINE
     Dosage: UNK (USE AS SKIN WASH ON AREAS PRONE TO BOILS 2?3 TI)
     Dates: start: 20210824, end: 20210825
  4. CLINDAMYCIN. [Concomitant]
     Active Substance: CLINDAMYCIN
     Dosage: 1 DOSAGE FORM, BID (TO AREAS PRONE TO BOILS)
     Dates: start: 20210824, end: 20210825
  5. FEXOFENADINE [Concomitant]
     Active Substance: FEXOFENADINE HYDROCHLORIDE
     Dosage: 1 DOSAGE FORM, QD
     Dates: start: 20180423
  6. SPIRONOLACTONE. [Concomitant]
     Active Substance: SPIRONOLACTONE
     Dosage: UNK (FOR 1 MONTH THEN INCREASE TO 2 DAILY)
     Dates: start: 20210907
  7. VENTOLIN [Concomitant]
     Active Substance: ALBUTEROL SULFATE
     Dosage: UNK (1?2 DOSES AS NEEDED UP TO FOUR TIMES DAILY)
     Route: 055
     Dates: start: 20200225
  8. CETRABEN                           /01007601/ [Concomitant]
     Dosage: UNK (APPLY EVERY DAY TO WHOLE BODY BEFORE BATHING R)
     Dates: start: 20210824, end: 20210831
  9. MOMETASONE [Concomitant]
     Active Substance: MOMETASONE
     Dosage: UNK (APPLY DAILY WHEN BAD AND REDUCE TO 2?3 TIMES A)
     Dates: start: 20210824, end: 20210921

REACTIONS (1)
  - Hallucination [Unknown]

NARRATIVE: CASE EVENT DATE: 20210922
